FAERS Safety Report 9276057 (Version 1)
Quarter: 2012Q4

REPORT INFORMATION
  Report Type: Spontaneous
  Country: US (occurrence: None)
  Receive Date: 20121109
  Receipt Date: 20121109
  Transmission Date: 20130627
  Serious: Yes (Other)
  Sender: FDA-Public Use
  Company Number: 2012S1000533

PATIENT
  Age: 43 Year
  Sex: Male
  Weight: 98 kg

DRUGS (5)
  1. CUBICIN (DAPTOMYCIN) [Concomitant]
     Dosage: 580 MG; UNK ; IVPB
     Route: 042
     Dates: start: 20120520, end: 20120529
  2. MEROPENEM [Concomitant]
     Route: 048
     Dates: start: 20120419, end: 20120530
  3. DIGITOXIN [Concomitant]
  4. BELOC ZOK [Concomitant]
  5. TARGIN [Concomitant]

REACTIONS (4)
  - Cardiac failure [None]
  - Blood creatine phosphokinase increased [None]
  - Hypertension [None]
  - Pain [None]
